FAERS Safety Report 8886118 (Version 2)
Quarter: 2013Q2

REPORT INFORMATION
  Report Type: Spontaneous
  Country: MX (occurrence: MX)
  Receive Date: 20121105
  Receipt Date: 20130415
  Transmission Date: 20140414
  Serious: Yes (Other)
  Sender: FDA-Public Use
  Company Number: PHHY2012MX100058

PATIENT
  Age: 74 Year
  Sex: Female

DRUGS (3)
  1. STALEVO [Suspect]
     Indication: PARKINSON^S DISEASE
     Dosage: 3 DF (200/100/25 MG), DAILY
     Dates: start: 20090522
  2. ASPIRIN [Concomitant]
  3. LEVODOPA [Concomitant]

REACTIONS (3)
  - Freezing phenomenon [Unknown]
  - Parkinsonian crisis [Not Recovered/Not Resolved]
  - Influenza [Not Recovered/Not Resolved]
